FAERS Safety Report 19736772 (Version 1)
Quarter: 2021Q3

REPORT INFORMATION
  Report Type: Spontaneous
  Country: US (occurrence: US)
  Receive Date: 20210824
  Receipt Date: 20210824
  Transmission Date: 20211014
  Serious: No
  Sender: FDA-Public Use
  Company Number: US-CADILA HEALTHCARE LIMITED-US-ZYDUS-066070

PATIENT

DRUGS (4)
  1. BOSENTAN 62.5 MG TABLETS [Suspect]
     Active Substance: BOSENTAN
     Indication: PULMONARY ARTERIAL HYPERTENSION
     Dosage: 62.5 MILLIGRAM, TWO TABLETS BID
     Route: 048
     Dates: start: 202104, end: 20210506
  2. ORENITRAM [Concomitant]
     Active Substance: TREPROSTINIL
     Indication: PRODUCT USED FOR UNKNOWN INDICATION
     Dosage: UNK
     Route: 065
  3. BOSENTAN 62.5 MG TABLETS [Suspect]
     Active Substance: BOSENTAN
     Dosage: 62.5 MILLIGRAM, ONE TABLET BID
     Route: 048
     Dates: start: 20210506, end: 202107
  4. NIFEDIPINE. [Concomitant]
     Active Substance: NIFEDIPINE
     Indication: PRODUCT USED FOR UNKNOWN INDICATION
     Dosage: UNK
     Route: 065

REACTIONS (7)
  - Diarrhoea [Unknown]
  - Abdominal distension [Unknown]
  - Dyspnoea [Unknown]
  - Fluid retention [Unknown]
  - Abdominal pain upper [Unknown]
  - Headache [Unknown]
  - Anal incontinence [Unknown]

NARRATIVE: CASE EVENT DATE: 202104
